FAERS Safety Report 7968580-7 (Version None)
Quarter: 2011Q4

REPORT INFORMATION
  Report Type: 
  Country: None (occurrence: None)
  Receive Date: 20111209
  Receipt Date: 20111202
  Transmission Date: 20120403
  Serious: Yes (Hospitalization)
  Sender: FDA-Public Use
  Company Number: US-JNJFOC-20111202991

PATIENT
  Sex: Male
  Weight: 70 kg

DRUGS (9)
  1. GOLIMUMAB [Suspect]
     Route: 058
     Dates: end: 20111024
  2. ASPIRIN [Concomitant]
     Route: 048
     Dates: start: 20100729
  3. GOLIMUMAB [Suspect]
     Indication: RHEUMATOID ARTHRITIS
     Route: 058
     Dates: start: 20070119
  4. CHANTIX [Concomitant]
     Route: 048
     Dates: start: 20070611
  5. NYQUIL [Concomitant]
     Route: 048
     Dates: start: 20081120
  6. HYDROCHLOROTHIAZIDE [Concomitant]
     Route: 048
     Dates: start: 20110408
  7. NAPROXEN (ALEVE) [Concomitant]
     Route: 048
     Dates: start: 20081003
  8. NIASPAN [Concomitant]
     Route: 048
     Dates: start: 20081003
  9. MULTI-VITAMINS [Concomitant]
     Route: 048

REACTIONS (1)
  - ABDOMINAL PAIN [None]
